FAERS Safety Report 18045103 (Version 2)
Quarter: 2020Q3

REPORT INFORMATION
  Report Type: Report from Study
  Country: US (occurrence: US)
  Receive Date: 20200720
  Receipt Date: 20200723
  Transmission Date: 20201103
  Serious: Yes (Hospitalization, Other)
  Sender: FDA-Public Use
  Company Number: US-SA-2020SA133326

PATIENT

DRUGS (2)
  1. ALEMTUZUMAB [Suspect]
     Active Substance: ALEMTUZUMAB
     Indication: MULTIPLE SCLEROSIS
     Dosage: 12 MG, QD
     Route: 041
     Dates: start: 20170215, end: 20170217
  2. ALEMTUZUMAB [Suspect]
     Active Substance: ALEMTUZUMAB
     Dosage: 12 MG, QD
     Route: 041
     Dates: start: 20160201, end: 20160205

REACTIONS (8)
  - Pyrexia [Recovered/Resolved]
  - Unevaluable event [Recovering/Resolving]
  - Immune thrombocytopenia [Not Recovered/Not Resolved]
  - Haemoglobin decreased [Recovering/Resolving]
  - Pulmonary sarcoidosis [Recovering/Resolving]
  - Haematocrit decreased [Recovering/Resolving]
  - Cardiac sarcoidosis [Recovering/Resolving]
  - Platelet count decreased [Not Recovered/Not Resolved]

NARRATIVE: CASE EVENT DATE: 201702
